FAERS Safety Report 9057949 (Version 1)
Quarter: 2013Q1

REPORT INFORMATION
  Report Type: Spontaneous
  Country: GB (occurrence: GB)
  Receive Date: 20130210
  Receipt Date: 20130210
  Transmission Date: 20140127
  Serious: Yes (Life-Threatening, Hospitalization)
  Sender: FDA-Public Use
  Company Number: GB-TEVA-383759ISR

PATIENT
  Age: 45 Year
  Sex: Female
  Weight: 40 kg

DRUGS (10)
  1. VENLAFAXINE [Suspect]
     Indication: DEPRESSION
     Route: 048
  2. CITALOPRAM [Suspect]
     Indication: DEPRESSION
     Route: 048
  3. CARBIMAZOLE [Suspect]
     Indication: HYPERTHYROIDISM
     Route: 048
  4. THYROXINE SODIUM [Concomitant]
  5. DIAZEPAM [Concomitant]
  6. ASPIRIN [Concomitant]
     Dosage: IN THE MORNING
  7. THIAMINE [Concomitant]
  8. VITAMINS A AND D [Concomitant]
     Dosage: IN THE MORNING
  9. VITAMIN B COMPLEX STRONG [Concomitant]
  10. PROPRANOLOL [Concomitant]

REACTIONS (1)
  - Neutropenic sepsis [Not Recovered/Not Resolved]
